FAERS Safety Report 20343924 (Version 2)
Quarter: 2022Q1

REPORT INFORMATION
  Report Type: Spontaneous
  Country: US (occurrence: US)
  Receive Date: 20220118
  Receipt Date: 20220315
  Transmission Date: 20220423
  Serious: Yes (Other)
  Sender: FDA-Public Use
  Company Number: US-BIOVITRUM-2022US00394

PATIENT
  Age: 41 Year
  Sex: Male

DRUGS (1)
  1. KINERET [Suspect]
     Active Substance: ANAKINRA
     Indication: Cryopyrin associated periodic syndrome
     Route: 058
     Dates: start: 20190720

REACTIONS (7)
  - Cryopyrin associated periodic syndrome [Unknown]
  - Condition aggravated [Unknown]
  - Feeling cold [Unknown]
  - Hepatic enzyme increased [Unknown]
  - Product dose omission issue [Unknown]
  - Off label use [Unknown]
  - Intentional product misuse [Unknown]

NARRATIVE: CASE EVENT DATE: 20190720
